FAERS Safety Report 9731236 (Version 1)
Quarter: 2013Q4

REPORT INFORMATION
  Report Type: Spontaneous
  Country: US (occurrence: US)
  Receive Date: 20131203
  Receipt Date: 20131203
  Transmission Date: 20140711
  Serious: No
  Sender: FDA-Public Use
  Company Number: US-009507513-1311USA007067

PATIENT
  Sex: Male
  Weight: 107.94 kg

DRUGS (4)
  1. PEGINTRON [Suspect]
     Indication: HEPATITIS C
     Dosage: 150 MICROGRAM, QW
     Dates: start: 2013
  2. PEGINTRON [Suspect]
     Dosage: 160 MICROGRAM, QW
     Dates: start: 20130504
  3. TELAPREVIR [Suspect]
     Indication: HEPATITIS C
     Dosage: UNK
     Dates: start: 20130504
  4. RIBASPHERE [Suspect]
     Indication: HEPATITIS C
     Dosage: UNK
     Dates: start: 20130504

REACTIONS (12)
  - Ataxia [Unknown]
  - Balance disorder [Unknown]
  - Hypertension [Unknown]
  - Dizziness [Unknown]
  - Nervous system disorder [Unknown]
  - Influenza like illness [Unknown]
  - Depression [Unknown]
  - Leukopenia [Unknown]
  - Anaemia [Unknown]
  - Weight decreased [Unknown]
  - White blood cell count decreased [Unknown]
  - Red blood cell count decreased [Unknown]
